FAERS Safety Report 23428830 (Version 2)
Quarter: 2024Q1

REPORT INFORMATION
  Report Type: Spontaneous
  Country: IN (occurrence: IN)
  Receive Date: 20240122
  Receipt Date: 20240222
  Transmission Date: 20240410
  Serious: Yes (Other)
  Sender: FDA-Public Use
  Company Number: IN-PFIZER INC-PV202300209841

PATIENT
  Age: 53 Year
  Sex: Female
  Weight: 58.2 kg

DRUGS (8)
  1. PALBOCICLIB [Suspect]
     Active Substance: PALBOCICLIB
     Indication: Breast cancer female
     Dosage: 125 MG, CYCLIC (1/DAY, 1 WEEK ON, 1 WEEK OFF)
     Route: 048
     Dates: start: 20231120
  2. PALBOCICLIB [Suspect]
     Active Substance: PALBOCICLIB
     Dosage: 125 MG, 3 WEEKS ON 1 OFF
  3. FEMARA [Concomitant]
     Active Substance: LETROZOLE
     Dosage: 2.5 MG, 1X/DAY
  4. CALCIUM\CHOLECALCIFEROL [Concomitant]
     Active Substance: CALCIUM\CHOLECALCIFEROL
     Dosage: 500 MG, 1X/DAY
  5. LIVOGEN [SACCHARATED IRON OXIDE] [Concomitant]
     Dosage: 2X/DAY
  6. ULTRACET [Concomitant]
     Active Substance: ACETAMINOPHEN\TRAMADOL HYDROCHLORIDE
     Dosage: AS NEEDED
  7. PREGABALIN [Concomitant]
     Active Substance: PREGABALIN
     Dosage: HS (HALF STRENGTH)
  8. ZOLASTA [Concomitant]

REACTIONS (3)
  - Blood pressure diastolic decreased [Unknown]
  - Blood pressure systolic increased [Unknown]
  - Off label use [Unknown]

NARRATIVE: CASE EVENT DATE: 20231202
